FAERS Safety Report 19190128 (Version 2)
Quarter: 2021Q2

REPORT INFORMATION
  Report Type: Report from Study
  Country: CO (occurrence: CO)
  Receive Date: 20210428
  Receipt Date: 20210521
  Transmission Date: 20210717
  Serious: Yes (Other)
  Sender: FDA-Public Use
  Company Number: CO-TAKEDA-2018TUS030699

PATIENT
  Age: 63 Year
  Sex: Female
  Weight: 63 kg

DRUGS (4)
  1. ACETAMINOPHEN AND CODEINE [Concomitant]
     Active Substance: ACETAMINOPHEN\CODEINE PHOSPHATE
     Indication: PAIN
     Dosage: UNK
     Route: 048
  2. VEDOLIZUMAB [Suspect]
     Active Substance: VEDOLIZUMAB
     Indication: COLITIS ULCERATIVE
     Dosage: 300 MILLIGRAM
     Route: 042
     Dates: start: 20181009
  3. PREDNISONE. [Concomitant]
     Active Substance: PREDNISONE
     Dosage: 5 MILLIGRAM, QD
  4. MYRBETRIQ [Concomitant]
     Active Substance: MIRABEGRON
     Dosage: 25 MILLIGRAM, BID

REACTIONS (39)
  - Asthenia [Recovered/Resolved]
  - Hordeolum [Recovered/Resolved]
  - Cough [Not Recovered/Not Resolved]
  - Rosacea [Not Recovered/Not Resolved]
  - Diarrhoea [Recovered/Resolved]
  - Weight increased [Unknown]
  - Acne [Recovered/Resolved]
  - Disturbance in attention [Not Recovered/Not Resolved]
  - Insomnia [Not Recovered/Not Resolved]
  - Bursitis [Recovering/Resolving]
  - Weight decreased [Unknown]
  - Abdominal pain [Recovered/Resolved]
  - Abdominal pain upper [Recovered/Resolved]
  - Vulvovaginal pain [Unknown]
  - Vulvovaginal dryness [Not Recovered/Not Resolved]
  - Gait disturbance [Recovered/Resolved]
  - Application site coldness [Recovering/Resolving]
  - Constipation [Not Recovered/Not Resolved]
  - Muscle spasms [Recovered/Resolved]
  - Discomfort [Recovered/Resolved]
  - Poor venous access [Recovered/Resolved]
  - Influenza [Recovered/Resolved]
  - Sjogren^s syndrome [Not Recovered/Not Resolved]
  - Gastrointestinal pain [Recovered/Resolved]
  - Arthritis [Recovering/Resolving]
  - Abdominal distension [Recovered/Resolved]
  - Pain in extremity [Recovering/Resolving]
  - Product dose omission issue [Unknown]
  - Malaise [Not Recovered/Not Resolved]
  - Proctalgia [Not Recovered/Not Resolved]
  - Cheilitis [Not Recovered/Not Resolved]
  - Anaesthesia oral [Not Recovered/Not Resolved]
  - Oropharyngeal pain [Not Recovered/Not Resolved]
  - Back pain [Not Recovered/Not Resolved]
  - Chills [Recovered/Resolved]
  - Dry eye [Unknown]
  - Pain [Recovered/Resolved]
  - Adverse event [Not Recovered/Not Resolved]
  - Headache [Not Recovered/Not Resolved]

NARRATIVE: CASE EVENT DATE: 20181009
